FAERS Safety Report 6012692-4 (Version None)
Quarter: 2008Q4

REPORT INFORMATION
  Report Type: 
  Country: None (occurrence: None)
  Receive Date: 20081218
  Receipt Date: 20081208
  Transmission Date: 20090506
  Serious: Yes (Death, Hospitalization)
  Sender: FDA-Public Use
  Company Number: CH-AMGEN-US320987

PATIENT
  Age: 49 Year
  Sex: Male

DRUGS (5)
  1. ENBREL [Suspect]
     Indication: POLYARTHRITIS
     Route: 058
     Dates: start: 20031001, end: 20040301
  2. ARAVA [Concomitant]
     Dates: start: 20040301
  3. PLAQUENIL [Concomitant]
     Dosage: UNSPECIFIED
     Dates: start: 20040301
  4. PREDNISONE TAB [Concomitant]
     Dates: start: 19980101
  5. PREDNISONE TAB [Concomitant]
     Dates: start: 20040301

REACTIONS (8)
  - ASPERGILLOSIS [None]
  - BRONCHITIS [None]
  - CARDIAC FAILURE [None]
  - CONDITION AGGRAVATED [None]
  - DRUG EFFECT DECREASED [None]
  - EMPYEMA [None]
  - GASTROINTESTINAL HAEMORRHAGE [None]
  - MUSCULOSKELETAL PAIN [None]
